FAERS Safety Report 6949155-5 (Version None)
Quarter: 2010Q3

REPORT INFORMATION
  Report Type: 
  Country: None (occurrence: None)
  Receive Date: 20100828
  Receipt Date: 20091207
  Transmission Date: 20110219
  Serious: No
  Sender: FDA-Public Use
  Company Number: US-ABBOTT-09P-163-0613475-00

PATIENT
  Sex: Male
  Weight: 163.44 kg

DRUGS (27)
  1. NIASPAN [Suspect]
     Indication: BLOOD CHOLESTEROL INCREASED
     Dates: start: 20090601, end: 20091120
  2. NIASPAN [Suspect]
     Dates: start: 20091120
  3. LISINOPRIL [Concomitant]
     Indication: CARDIAC DISORDER
  4. METROPOLOL [Concomitant]
     Indication: CARDIAC DISORDER
  5. METROPOLOL [Concomitant]
     Indication: HEART RATE IRREGULAR
  6. ASPIRIN [Concomitant]
     Indication: CARDIAC DISORDER
  7. ACTOS [Concomitant]
     Indication: DIABETES MELLITUS
  8. ADVAIR DISKUS 100/50 [Concomitant]
     Indication: CHRONIC OBSTRUCTIVE PULMONARY DISEASE
     Dosage: 250/50MG
  9. ALBUTEROL [Concomitant]
     Indication: CHRONIC OBSTRUCTIVE PULMONARY DISEASE
  10. ASTALIN [Concomitant]
     Indication: HYPERSENSITIVITY
  11. ASTALIN [Concomitant]
  12. CHANTIX [Concomitant]
     Indication: EX-TOBACCO USER
  13. CITALOPRAM [Concomitant]
     Indication: DEPRESSION
  14. CLOBETASOL PROPIONATE [Concomitant]
     Indication: GRANULOMA ANNULARE
  15. FLUTICASONE PROPIONATE [Concomitant]
     Indication: CHRONIC OBSTRUCTIVE PULMONARY DISEASE
  16. GLIPAZIDE [Concomitant]
     Indication: DIABETES MELLITUS
  17. JANUVIA [Concomitant]
     Indication: DIABETES MELLITUS
  18. METOLAZONE [Concomitant]
     Indication: CHRONIC OBSTRUCTIVE PULMONARY DISEASE
  19. METFORMIN [Concomitant]
     Indication: DIABETES MELLITUS
  20. NABUMETONE [Concomitant]
     Indication: ARTHRITIS
  21. NIACINAMIDE [Concomitant]
     Indication: VITAMIN SUPPLEMENTATION
  22. POTASSIUM [Concomitant]
     Indication: MINERAL SUPPLEMENTATION
  23. DARVACET [Concomitant]
     Indication: ARTHRITIS
     Dosage: 100/650MG
  24. SIMVASTATIN [Concomitant]
     Indication: BLOOD CHOLESTEROL INCREASED
  25. SPIRIVA [Concomitant]
     Indication: CHRONIC OBSTRUCTIVE PULMONARY DISEASE
  26. SPIRONOLACTONE [Concomitant]
     Indication: CHRONIC OBSTRUCTIVE PULMONARY DISEASE
  27. TRILIPIX [Concomitant]
     Indication: BLOOD CHOLESTEROL INCREASED
     Dates: start: 20090301

REACTIONS (4)
  - BLOOD GLUCOSE DECREASED [None]
  - FLUSHING [None]
  - HAEMOGLOBIN DECREASED [None]
  - PRURITUS [None]
